FAERS Safety Report 19444025 (Version 3)
Quarter: 2022Q1

REPORT INFORMATION
  Report Type: Spontaneous
  Country: US (occurrence: US)
  Receive Date: 20210621
  Receipt Date: 20220106
  Transmission Date: 20220423
  Serious: No
  Sender: FDA-Public Use
  Company Number: US-SHIONOGI, INC-2021000054

PATIENT
  Age: 64 Year

DRUGS (2)
  1. FETROJA [Suspect]
     Active Substance: CEFIDEROCOL SULFATE TOSYLATE
     Indication: Bacteraemia
     Dosage: 0.75 G, 12 HOUR
     Route: 042
     Dates: start: 20210113, end: 20210114
  2. FETROJA [Suspect]
     Active Substance: CEFIDEROCOL SULFATE TOSYLATE
     Indication: Pseudomonas infection

REACTIONS (3)
  - Pathogen resistance [Unknown]
  - Product storage error [Unknown]
  - Medication error [Unknown]

NARRATIVE: CASE EVENT DATE: 20210101
